FAERS Safety Report 8815498 (Version 6)
Quarter: 2015Q1

REPORT INFORMATION
  Report Type: Report from Study
  Country: JP (occurrence: JP)
  Receive Date: 20120928
  Receipt Date: 20150320
  Transmission Date: 20150721
  Serious: Yes (Death, Hospitalization, Other)
  Sender: FDA-Public Use
  Company Number: JP-GLAXOSMITHKLINE-B0833197A

PATIENT
  Age: 85 Year
  Sex: Female

DRUGS (15)
  1. PREDONINE [Concomitant]
     Active Substance: PREDNISOLONE\PREDNISOLONE ACETATE\PREDNISOLONE SODIUM SUCCINATE
     Indication: PNEUMOCYSTIS JIROVECII PNEUMONIA
     Dosage: 20 MG, QD
     Dates: start: 20111125, end: 20111225
  2. FORTEO [Concomitant]
     Active Substance: TERIPARATIDE
     Indication: OSTEOPOROSIS
     Route: 058
     Dates: start: 20120726, end: 20120811
  3. ISONIAZID. [Suspect]
     Active Substance: ISONIAZID
     Dosage: 1 DF, TID
     Route: 048
     Dates: start: 20110727
  4. PREDONINE [Concomitant]
     Active Substance: PREDNISOLONE\PREDNISOLONE ACETATE\PREDNISOLONE SODIUM SUCCINATE
     Dosage: 15 MG, QD
     Dates: start: 20120724, end: 20120725
  5. ALFAROL [Concomitant]
     Active Substance: ALFACALCIDOL
     Indication: OSTEOPOROSIS
     Dosage: 0.5 ?G, QD
     Route: 048
     Dates: start: 20120726, end: 20120730
  6. TAKEPRON [Concomitant]
     Active Substance: LANSOPRAZOLE
     Indication: PROPHYLAXIS
     Dosage: 30 MG, QD
     Dates: start: 20120629, end: 20120905
  7. PREDONINE [Concomitant]
     Active Substance: PREDNISOLONE\PREDNISOLONE ACETATE\PREDNISOLONE SODIUM SUCCINATE
     Indication: TEMPORAL ARTERITIS
     Dosage: 15 MG, QD
     Dates: start: 20111226, end: 20120513
  8. PREDONINE [Concomitant]
     Active Substance: PREDNISOLONE\PREDNISOLONE ACETATE\PREDNISOLONE SODIUM SUCCINATE
     Dosage: 12.5 MG, QD
     Dates: start: 20120726, end: 20120905
  9. ISONIAZID. [Suspect]
     Active Substance: ISONIAZID
     Indication: TUBERCULOSIS
     Dosage: 1 DF, TID
     Route: 048
     Dates: start: 2011, end: 20110628
  10. PREDONINE [Concomitant]
     Active Substance: PREDNISOLONE\PREDNISOLONE ACETATE\PREDNISOLONE SODIUM SUCCINATE
     Dosage: 20 MG, BID
     Dates: start: 20120629, end: 20120723
  11. WARFARIN [Concomitant]
     Active Substance: WARFARIN
     Indication: DEEP VEIN THROMBOSIS
     Dosage: 0.25 MG, QD
     Dates: start: 20120727, end: 20120817
  12. ATOVAQUONE. [Suspect]
     Active Substance: ATOVAQUONE
     Dosage: 1500 ML, QD
     Route: 048
     Dates: start: 20120711, end: 20120817
  13. ATOVAQUONE. [Suspect]
     Active Substance: ATOVAQUONE
     Indication: PNEUMOCYSTIS JIROVECII PNEUMONIA
     Dosage: 750 ML, BID
     Route: 048
     Dates: start: 20120710, end: 20120710
  14. ISONIAZID. [Suspect]
     Active Substance: ISONIAZID
     Dosage: 200 MG, QD
     Route: 048
     Dates: start: 20120629, end: 20120821
  15. PREDONINE [Concomitant]
     Active Substance: PREDNISOLONE\PREDNISOLONE ACETATE\PREDNISOLONE SODIUM SUCCINATE
     Dosage: 7.5 MG, QD
     Dates: start: 20120514

REACTIONS (3)
  - Hepatic failure [Fatal]
  - Hepatorenal syndrome [Fatal]
  - Deep vein thrombosis [Recovering/Resolving]

NARRATIVE: CASE EVENT DATE: 20120727
